FAERS Safety Report 4951097-1 (Version None)
Quarter: 2006Q1

REPORT INFORMATION
  Report Type: 
  Country: None (occurrence: None)
  Receive Date: 20060322
  Receipt Date: 20060103
  Transmission Date: 20060701
  Serious: Yes (Hospitalization, Disabling, Other)
  Sender: FDA-Public Use
  Company Number: US-MERCK-0601USA00227

PATIENT
  Age: 50 Year
  Sex: Male
  Weight: 102 kg

DRUGS (18)
  1. VIOXX [Suspect]
     Indication: ARTHRITIS
     Route: 048
     Dates: start: 20010901, end: 20040101
  2. ASPIRIN [Concomitant]
     Route: 065
  3. DILTIAZEM HCL [Concomitant]
     Route: 065
  4. AVAPRO [Concomitant]
     Route: 065
  5. THEOPHYLLINE [Concomitant]
     Route: 065
  6. XANAX [Concomitant]
     Route: 065
  7. NITRO [Concomitant]
     Route: 060
  8. ALLEGRA [Concomitant]
     Route: 065
  9. MAXZIDE [Concomitant]
     Route: 065
  10. TIAZAC [Concomitant]
     Route: 065
  11. GLUCOVANCE [Concomitant]
     Route: 065
  12. PREVACID [Concomitant]
     Route: 065
  13. PRAVACHOL [Concomitant]
     Route: 065
  14. LOPRESSOR [Concomitant]
     Route: 065
  15. PRILOSEC [Concomitant]
     Route: 065
  16. ACCUPRIL [Concomitant]
     Route: 065
  17. PREDNISONE [Concomitant]
     Route: 065
  18. ENALAPRIL MALEATE AND HYDROCHLOROTHIAZIDE [Concomitant]
     Route: 065

REACTIONS (27)
  - ARRHYTHMIA [None]
  - ARTERIOSCLEROSIS [None]
  - BRONCHOSPASM [None]
  - BUNDLE BRANCH BLOCK RIGHT [None]
  - CARDIOMEGALY [None]
  - CORONARY ARTERY DISEASE [None]
  - COUGH [None]
  - DIVERTICULUM [None]
  - DYSPNOEA [None]
  - EJECTION FRACTION DECREASED [None]
  - HAEMOPTYSIS [None]
  - HAEMORRHOIDS [None]
  - HEART RATE ABNORMAL [None]
  - HYPERTENSION [None]
  - ISCHAEMIC CARDIOMYOPATHY [None]
  - JOINT SWELLING [None]
  - MITRAL VALVE INCOMPETENCE [None]
  - MYALGIA [None]
  - MYOCARDIAL INFARCTION [None]
  - OXYGEN SATURATION DECREASED [None]
  - PHARYNGOLARYNGEAL PAIN [None]
  - PULMONARY CONGESTION [None]
  - REMOVAL OF FOREIGN BODY [None]
  - SLEEP APNOEA SYNDROME [None]
  - VENTRICULAR DYSFUNCTION [None]
  - VENTRICULAR TACHYCARDIA [None]
  - WHEEZING [None]
